FAERS Safety Report 6806708-2 (Version None)
Quarter: 2010Q2

REPORT INFORMATION
  Report Type: 
  Country: None (occurrence: None)
  Receive Date: 20100629
  Receipt Date: 20080521
  Transmission Date: 20101027
  Serious: No
  Sender: FDA-Public Use
  Company Number: IL-PFIZER INC-2008030074

PATIENT
  Sex: Male

DRUGS (1)
  1. LINEZOLID [Suspect]
     Indication: CELLULITIS

REACTIONS (1)
  - URTICARIA [None]
